FAERS Safety Report 6326011-7 (Version None)
Quarter: 2009Q3

REPORT INFORMATION
  Report Type: 
  Country: None (occurrence: None)
  Receive Date: 20090824
  Receipt Date: 20090810
  Transmission Date: 20100115
  Serious: Yes (Other)
  Sender: FDA-Public Use
  Company Number: US-ROCHE-615169

PATIENT
  Sex: Female

DRUGS (6)
  1. PEGASYS [Suspect]
     Indication: HEPATITIS C
     Dosage: FORM: PRE FILLED SYRINGE
     Route: 065
     Dates: start: 20070202, end: 20070309
  2. PEGASYS [Suspect]
     Dosage: THERAPY RESTARTED, 72 WEEK COURSE
     Route: 065
     Dates: start: 20090216, end: 20090305
  3. PEGASYS [Suspect]
     Route: 065
     Dates: start: 20090731
  4. RIBAVIRIN [Suspect]
     Indication: HEPATITIS C
     Route: 065
     Dates: start: 20090731
  5. RIBAVIRIN (NON-ROCHE) [Suspect]
     Indication: HEPATITIS C
     Dosage: THERAPY RESTARTED, 72 WEEK COURSE
     Route: 065
     Dates: start: 20090216, end: 20090305
  6. DILAUDID [Suspect]
     Indication: DRUG USE FOR UNKNOWN INDICATION
     Route: 065

REACTIONS (11)
  - ARTHRALGIA [None]
  - BLOOD ALKALINE PHOSPHATASE ABNORMAL [None]
  - BLOOD GLUCOSE ABNORMAL [None]
  - DEPRESSION [None]
  - FATIGUE [None]
  - HOMICIDAL IDEATION [None]
  - MUSCULOSKELETAL PAIN [None]
  - NAUSEA [None]
  - PAIN [None]
  - SHOULDER OPERATION [None]
  - VOMITING [None]
